FAERS Safety Report 4628182-7 (Version None)
Quarter: 2005Q2

REPORT INFORMATION
  Report Type: 
  Country: None (occurrence: None)
  Receive Date: 20050406
  Receipt Date: 20050404
  Transmission Date: 20051028
  Serious: Yes (Hospitalization)
  Sender: FDA-Public Use
  Company Number: PHRM2005FR01208

PATIENT
  Age: 17 Year
  Sex: Female

DRUGS (4)
  1. TRILEPTAL [Suspect]
     Dosage: 300 MG, BID
     Route: 048
     Dates: start: 20050209, end: 20050222
  2. GARDENAL [Suspect]
     Dosage: 150 MG, BID
     Route: 048
     Dates: start: 20050214, end: 20050222
  3. VALIUM [Suspect]
     Dosage: 10 MG, QD
     Route: 042
     Dates: start: 20050214, end: 20050214
  4. KEPPRA [Suspect]

REACTIONS (4)
  - EOSINOPHILIA [None]
  - HEPATITIS [None]
  - PYREXIA [None]
  - RASH [None]
